FAERS Safety Report 7072315-2 (Version None)
Quarter: 2010Q4

REPORT INFORMATION
  Report Type: 
  Country: None (occurrence: None)
  Receive Date: 20101029
  Receipt Date: 20100107
  Transmission Date: 20110411
  Serious: No
  Sender: FDA-Public Use
  Company Number: A0838304A

PATIENT
  Sex: Female

DRUGS (8)
  1. ADVAIR DISKUS 100/50 [Suspect]
     Indication: CHRONIC OBSTRUCTIVE PULMONARY DISEASE
     Dosage: 1PUFF TWICE PER DAY
     Route: 055
     Dates: start: 20080101
  2. CARDIZEM LA [Concomitant]
  3. DYAZIDE [Concomitant]
  4. NEXIUM [Concomitant]
  5. ZANTAC [Concomitant]
  6. GAVISCON [Concomitant]
  7. ACETAMINOPHEN [Concomitant]
  8. ANTIVERT [Concomitant]

REACTIONS (2)
  - DYSPNOEA [None]
  - PALPITATIONS [None]
